FAERS Safety Report 5699423-2 (Version None)
Quarter: 2008Q2

REPORT INFORMATION
  Report Type: 
  Country: None (occurrence: None)
  Receive Date: 20080407
  Receipt Date: 20080321
  Transmission Date: 20081010
  Serious: Yes (Hospitalization)
  Sender: FDA-Public Use
  Company Number: PIR# 0804003

PATIENT
  Age: 63 Year
  Sex: Male
  Weight: 74 kg

DRUGS (1)
  1. POTASSIUM CHLORIDE 10% (B.BRAUN MEDICAL INC.) [Suspect]
     Dosage: 1GM PER HOUR FOR 5 HRS

REACTIONS (2)
  - INCORRECT ROUTE OF DRUG ADMINISTRATION [None]
  - PARAPLEGIA [None]
